FAERS Safety Report 4354056-5 (Version None)
Quarter: 2004Q2

REPORT INFORMATION
  Report Type: 
  Country: None (occurrence: None)
  Receive Date: 20040503
  Receipt Date: 20040421
  Transmission Date: 20050107
  Serious: No
  Sender: FDA-Public Use
  Company Number: DE-SHR-04-021517

PATIENT
  Sex: Female

DRUGS (1)
  1. BETAFERON(INTERFERON BETA-1B) INJECTION, 250UG [Suspect]
     Dosage: EVERY 2D, SUBCUTANEOUS
     Route: 058

REACTIONS (2)
  - ACNE [None]
  - GROIN ABSCESS [None]
